FAERS Safety Report 10682667 (Version 1)
Quarter: 2014Q4

REPORT INFORMATION
  Report Type: Spontaneous
  Country: US (occurrence: None)
  Receive Date: 20141229
  Receipt Date: 20141229
  Transmission Date: 20150529
  Serious: Yes (Other)
  Sender: FDA-Public Use
  Company Number: None

PATIENT
  Age: 54 Year
  Sex: Male
  Weight: 67.13 kg

DRUGS (1)
  1. EPZICOM [Suspect]
     Active Substance: ABACAVIR SULFATE\LAMIVUDINE
     Indication: HIV INFECTION
     Dosage: 1 ONCE DAILY
     Route: 048
     Dates: start: 20141126, end: 20141205

REACTIONS (3)
  - Dizziness [None]
  - Seizure [None]
  - Paraesthesia [None]

NARRATIVE: CASE EVENT DATE: 20141207
